FAERS Safety Report 24682622 (Version 1)
Quarter: 2024Q4

REPORT INFORMATION
  Report Type: Spontaneous
  Country: US (occurrence: US)
  Receive Date: 20241130
  Receipt Date: 20241130
  Transmission Date: 20250114
  Serious: Yes (Life-Threatening, Other)
  Sender: AMGEN
  Company Number: US-AMGEN-USASP2024234813

PATIENT

DRUGS (1)
  1. RITUXIMAB [Suspect]
     Active Substance: RITUXIMAB
     Indication: Non-Hodgkin^s lymphoma
     Dosage: UNK
     Route: 065

REACTIONS (5)
  - Immune effector cell-associated neurotoxicity syndrome [Unknown]
  - Non-Hodgkin^s lymphoma recurrent [Unknown]
  - Cytokine release syndrome [Unknown]
  - Therapy partial responder [Unknown]
  - Treatment failure [Unknown]
